FAERS Safety Report 15943094 (Version 2)
Quarter: 2019Q1

REPORT INFORMATION
  Report Type: Spontaneous
  Country: FR (occurrence: FR)
  Receive Date: 20190210
  Receipt Date: 20190328
  Transmission Date: 20190417
  Serious: Yes (Hospitalization, Other)
  Sender: FDA-Public Use
  Company Number: PHHY2019FR030529

PATIENT
  Age: 20 Year
  Sex: Male

DRUGS (1)
  1. AMOXICILLIN. [Suspect]
     Active Substance: AMOXICILLIN
     Indication: ACUTE SINUSITIS
     Dosage: UNK
     Route: 065

REACTIONS (1)
  - Linear IgA disease [Recovering/Resolving]

NARRATIVE: CASE EVENT DATE: 20190113
